FAERS Safety Report 19512334 (Version 1)
Quarter: 2021Q3

REPORT INFORMATION
  Report Type: Spontaneous
  Country: US (occurrence: US)
  Receive Date: 20210709
  Receipt Date: 20210709
  Transmission Date: 20211014
  Serious: Yes (Hospitalization)
  Sender: FDA-Public Use
  Company Number: US-ELI_LILLY_AND_COMPANY-US202107003091

PATIENT
  Sex: Male

DRUGS (5)
  1. HUMALOG [Suspect]
     Active Substance: INSULIN LISPRO
     Indication: TYPE 2 DIABETES MELLITUS
     Dosage: 18 U, DAILY (3?6, 18 UNITS MAXIMUM DAILY)
     Route: 065
  2. HUMALOG [Suspect]
     Active Substance: INSULIN LISPRO
     Dosage: 18 U, DAILY (3?6, 18 UNITS MAXIMUM DAILY)
     Route: 065
     Dates: end: 2021
  3. HUMALOG [Suspect]
     Active Substance: INSULIN LISPRO
     Indication: TYPE 2 DIABETES MELLITUS
     Dosage: 18 U, DAILY (3?6, 18 UNITS MAXIMUM DAILY)
     Route: 065
  4. LANTUS [Concomitant]
     Active Substance: INSULIN GLARGINE
     Indication: PRODUCT USED FOR UNKNOWN INDICATION
     Dosage: 10 U, BID
  5. HUMALOG [Suspect]
     Active Substance: INSULIN LISPRO
     Dosage: 18 U, DAILY (3?6, 18 UNITS MAXIMUM DAILY)
     Route: 065
     Dates: end: 2021

REACTIONS (2)
  - Non-Hodgkin^s lymphoma stage IV [Recovered/Resolved]
  - Diabetes mellitus inadequate control [Unknown]
